FAERS Safety Report 23635236 (Version 1)
Quarter: 2024Q1

REPORT INFORMATION
  Report Type: Spontaneous
  Country: PK (occurrence: PK)
  Receive Date: 20240315
  Receipt Date: 20240315
  Transmission Date: 20240410
  Serious: Yes (Other)
  Sender: FDA-Public Use
  Company Number: PK-PFIZER INC-2021622574

PATIENT
  Age: 68 Year
  Sex: Female

DRUGS (21)
  1. ENBREL [Suspect]
     Active Substance: ETANERCEPT
     Indication: Rheumatoid arthritis
     Dosage: 50 MILLIGRAM, QWK
     Route: 058
     Dates: start: 20210528
  2. METHOTREXATE [Concomitant]
     Active Substance: METHOTREXATE
     Dosage: 15 MG, WEEKLY, AFTER BREAKFAST
  3. METHOTREXATE [Concomitant]
     Active Substance: METHOTREXATE
     Dosage: 15 MG, WEEKLY, AFTER BREAKFAST
  4. FOLIC ACID [Concomitant]
     Active Substance: FOLIC ACID
     Dosage: 5 MG, DAILY
  5. HYDROXYCHLOROQUINE SULFATE [Concomitant]
     Active Substance: HYDROXYCHLOROQUINE SULFATE
     Dosage: TAKE 1 TABLET IN MORNING AND 1 IN EVENING AFTER MEAL
  6. HYDROXYCHLOROQUINE SULFATE [Concomitant]
     Active Substance: HYDROXYCHLOROQUINE SULFATE
     Dosage: 200 MILLIGRAM, QD
  7. LEFLUNOMIDE [Concomitant]
     Active Substance: LEFLUNOMIDE
     Dosage: TAKE 1/2 TABLET IN MORNING AND 1/2 TABLET IN EVENING AFTER MEAL
  8. LEFLUNOMIDE [Concomitant]
     Active Substance: LEFLUNOMIDE
     Dosage: 20 MG, 1X/DAY
  9. Sunny d [Concomitant]
     Dosage: TAKE ONE CAPSULE AFTER 3 MONTHS
  10. Sunny d [Concomitant]
     Dosage: 1 X CAPSULES, ONCE IN TWO MONTHS
  11. PANADOL [Concomitant]
     Active Substance: ACETAMINOPHEN
     Indication: Pain
     Dosage: 500 MG, AS NEEDED
  12. PANADOL [Concomitant]
     Active Substance: ACETAMINOPHEN
     Dosage: 2 X TABLETS, ONCE A DAY, AFTER MEAL, WHEN REQUIRED
  13. TONOFLEX P [Concomitant]
     Dosage: UNK
  14. DICLOFENAC SODIUM [Concomitant]
     Active Substance: DICLOFENAC\DICLOFENAC SODIUM
     Dosage: UNK, 3X/DAY
  15. DELTACORTRIL [Concomitant]
     Active Substance: PREDNISOLONE
     Dosage: TAKE 1 TABLET IN MORNING AFTER MEAL
  16. NUBEROL [Concomitant]
     Dosage: TAKE 1 TABLET IN EVENING AFTER MEAL (AT NIGHT)
  17. OSTEOCARE [Concomitant]
     Active Substance: CALCIUM\CHOLECALCIFEROL\MAGNESIUM\ZINC
     Dosage: TAKE 1 TABLET IN AFTERNOON AFTER MEAL (LUNCH)
  18. Ca c 1000 [Concomitant]
     Dosage: 1 DF, 1X/DAY (1 X TABLETS, ONCE A DAY)
  19. MYCITRACIN PLUS [Concomitant]
     Dosage: APPLY LOCALLY TWICE DAILY FOR 1 WEEKS
  20. Dolgina [Concomitant]
     Dosage: 60 MG BEFORE MEAL 1 CAP IN EVENING BEFORE MEAL
  21. Rapicort [Concomitant]
     Dosage: UNK

REACTIONS (11)
  - Atrial fibrillation [Unknown]
  - Blood pressure increased [Unknown]
  - Pain [Unknown]
  - Arthralgia [Unknown]
  - Musculoskeletal stiffness [Unknown]
  - Joint swelling [Unknown]
  - Hyperhidrosis [Unknown]
  - Aspiration joint [Unknown]
  - Haemoglobin decreased [Unknown]
  - White blood cell count increased [Unknown]
  - Infection [Unknown]

NARRATIVE: CASE EVENT DATE: 20210101
